FAERS Safety Report 17275114 (Version 3)
Quarter: 2020Q1

REPORT INFORMATION
  Report Type: Spontaneous
  Country: JP (occurrence: JP)
  Receive Date: 20200116
  Receipt Date: 20200318
  Transmission Date: 20200409
  Serious: Yes (Hospitalization, Other)
  Sender: FDA-Public Use
  Company Number: JP-BRISTOL-MYERS SQUIBB COMPANY-BMS-2020-003042

PATIENT
  Age: 80 Year
  Sex: Female
  Weight: 69 kg

DRUGS (17)
  1. ELIQUIS [Suspect]
     Active Substance: APIXABAN
     Indication: CEREBROVASCULAR ACCIDENT PROPHYLAXIS
     Dosage: 2.5 MILLIGRAM, BID
     Route: 048
     Dates: start: 20181001, end: 20191119
  2. EVENITY [Suspect]
     Active Substance: ROMOSOZUMAB-AQQG
     Indication: OSTEOPOROSIS
     Dosage: UNK, QMO
     Route: 058
     Dates: start: 201909
  3. PARMODIA [Concomitant]
     Indication: HYPERLIPIDAEMIA
     Dosage: 0.1 UNK, BID
     Route: 048
     Dates: start: 20180704
  4. OMEPRAZOLE. [Concomitant]
     Active Substance: OMEPRAZOLE
     Indication: GASTROOESOPHAGEAL REFLUX DISEASE
     Dosage: 20 UNK, QD
     Route: 065
     Dates: start: 20181109
  5. ONGLYZA [Concomitant]
     Active Substance: SAXAGLIPTIN HYDROCHLORIDE
     Indication: DIABETES MELLITUS
     Dosage: 2.5 UNK, QD
     Route: 048
     Dates: start: 20190301, end: 20191114
  6. SAMSCA [Concomitant]
     Active Substance: TOLVAPTAN
     Indication: CARDIAC FAILURE CONGESTIVE
     Dosage: 7.5 UNK, QD
     Route: 048
     Dates: start: 20181227
  7. AMIODARONE [Concomitant]
     Active Substance: AMIODARONE
     Indication: ATRIAL TACHYCARDIA
     Dosage: 100 UNK, QD
     Route: 065
     Dates: start: 20180627, end: 20180706
  8. ILUAMIX [Concomitant]
     Indication: HYPERTENSION
     Dosage: UNK UNK, QD
     Route: 048
     Dates: start: 20180704
  9. PREDONINE [Concomitant]
     Active Substance: PREDNISOLONE
     Indication: POLYMYALGIA RHEUMATICA
     Dosage: 5 UNK, QD
     Route: 048
     Dates: start: 20180522
  10. BISOPROLOL [Concomitant]
     Active Substance: BISOPROLOL
     Indication: CARDIAC FAILURE CONGESTIVE
     Dosage: 2.5 UNK, QD
     Route: 048
     Dates: start: 20180704
  11. JARDIANCE [Concomitant]
     Active Substance: EMPAGLIFLOZIN
     Indication: DIABETES MELLITUS
     Dosage: 10 UNK, QD
     Route: 048
     Dates: start: 20190621
  12. JARDIANCE [Concomitant]
     Active Substance: EMPAGLIFLOZIN
     Indication: CARDIAC FAILURE CONGESTIVE
     Route: 065
  13. FUROSEMIDE. [Concomitant]
     Active Substance: FUROSEMIDE
     Indication: CARDIAC FAILURE CONGESTIVE
     Dosage: 20 UNK, QD
     Route: 048
     Dates: start: 20180704
  14. BISOPROLOL [Concomitant]
     Active Substance: BISOPROLOL
     Indication: HYPERTENSION
     Route: 065
  15. ELIQUIS [Suspect]
     Active Substance: APIXABAN
     Indication: DEEP VEIN THROMBOSIS
     Route: 065
  16. SPIRONOLACTONE. [Concomitant]
     Active Substance: SPIRONOLACTONE
     Indication: CARDIAC FAILURE CONGESTIVE
     Dosage: 25 UNK, QD
     Route: 048
     Dates: start: 20180704
  17. PREDONINE [Suspect]
     Active Substance: PREDNISOLONE
     Indication: POLYMYALGIA RHEUMATICA
     Dosage: 5 UNK, QD
     Route: 048
     Dates: start: 20180522

REACTIONS (5)
  - Spinal compression fracture [Unknown]
  - Cardiac failure [Recovering/Resolving]
  - Interstitial lung disease [Recovering/Resolving]
  - Diabetes mellitus [Not Recovered/Not Resolved]
  - Osteoporosis [Unknown]

NARRATIVE: CASE EVENT DATE: 20190301
